FAERS Safety Report 6463851-8 (Version None)
Quarter: 2009Q4

REPORT INFORMATION
  Report Type: 
  Country: None (occurrence: None)
  Receive Date: 20091130
  Receipt Date: 20091130
  Transmission Date: 20100525
  Serious: Yes (Life-Threatening)
  Sender: FDA-Public Use
  Company Number: None

PATIENT
  Age: 79 Year
  Sex: Male
  Weight: 89.3 kg

DRUGS (2)
  1. LEXISCAN [Suspect]
     Indication: CARDIOVASCULAR DISORDER
     Dosage: 0.4 MG ONCE IV
     Route: 042
     Dates: start: 20090917, end: 20090917
  2. LEXISCAN [Suspect]
     Indication: SURGERY
     Dosage: 0.4 MG ONCE IV
     Route: 042
     Dates: start: 20090917, end: 20090917

REACTIONS (8)
  - ATRIOVENTRICULAR BLOCK COMPLETE [None]
  - ATRIOVENTRICULAR BLOCK FIRST DEGREE [None]
  - BLOOD PRESSURE INCREASED [None]
  - CARDIAC ARREST [None]
  - HYPERHIDROSIS [None]
  - NAUSEA [None]
  - PROCEDURAL COMPLICATION [None]
  - VOMITING [None]
